FAERS Safety Report 6998870-6 (Version None)
Quarter: 2010Q3

REPORT INFORMATION
  Report Type: 
  Country: None (occurrence: None)
  Receive Date: 20100920
  Receipt Date: 20091028
  Transmission Date: 20110219
  Serious: No
  Sender: FDA-Public Use
  Company Number: US-ASTRAZENECA-2009SE23109

PATIENT
  Age: 19 Year
  Sex: Female

DRUGS (4)
  1. SEROQUEL [Suspect]
     Indication: BIPOLAR DISORDER
     Route: 048
     Dates: end: 20090801
  2. SEROQUEL [Suspect]
     Indication: INSOMNIA
     Route: 048
     Dates: end: 20090801
  3. SEROQUEL [Suspect]
     Route: 048
     Dates: start: 20090801
  4. SEROQUEL [Suspect]
     Route: 048
     Dates: start: 20090801

REACTIONS (3)
  - DEPRESSION [None]
  - DRUG ABUSE [None]
  - INTENTIONAL DRUG MISUSE [None]
